FAERS Safety Report 25439370 (Version 1)
Quarter: 2025Q2

REPORT INFORMATION
  Report Type: Spontaneous
  Country: US (occurrence: None)
  Receive Date: 20250613
  Receipt Date: 20250613
  Transmission Date: 20250716
  Serious: No
  Sender: FDA-CTU
  Company Number: None

PATIENT
  Age: 14 Year
  Sex: Female

DRUGS (1)
  1. EPIDIOLEX [Suspect]
     Active Substance: CANNABIDIOL
     Indication: Generalised tonic-clonic seizure
     Dosage: FREQUENCY : TWICE A DAY;?
     Route: 048
     Dates: start: 20240711

REACTIONS (2)
  - Haemoglobin decreased [None]
  - Full blood count abnormal [None]

NARRATIVE: CASE EVENT DATE: 20250613
